FAERS Safety Report 4371548-3 (Version None)
Quarter: 2004Q2

REPORT INFORMATION
  Report Type: 
  Country: None (occurrence: None)
  Receive Date: 20040602
  Receipt Date: 20040520
  Transmission Date: 20050107
  Serious: No
  Sender: FDA-Public Use
  Company Number: 04P-163-0260289-00

PATIENT
  Age: 22 Year
  Sex: Female

DRUGS (6)
  1. HUMIRA [Suspect]
     Indication: JUVENILE ARTHRITIS
     Dosage: 40 MG, 2 IN 1 M, SUBCUTANEOUS
     Route: 058
     Dates: end: 20040229
  2. METHOTREXATE SODIUM [Suspect]
     Dosage: 5 MG, 5 IN 1 WK
     Dates: end: 20040229
  3. PREDNISONE [Concomitant]
  4. NORETHINDRONE ACETATE AND ETHINYL ESTRADIOL [Concomitant]
  5. PRENATAL VITAMINS [Concomitant]
  6. FOLIC ACID [Concomitant]

REACTIONS (4)
  - ABORTION SPONTANEOUS [None]
  - DRUG EXPOSURE DURING PREGNANCY [None]
  - PREGNANCY [None]
  - TREATMENT NONCOMPLIANCE [None]
